FAERS Safety Report 18625788 (Version 1)
Quarter: 2020Q4

REPORT INFORMATION
  Report Type: Spontaneous
  Country: US (occurrence: US)
  Receive Date: 20201217
  Receipt Date: 20201217
  Transmission Date: 20210114
  Serious: No
  Sender: FDA-Public Use
  Company Number: US-009507513-2011USA012186

PATIENT
  Sex: Male

DRUGS (5)
  1. KEYTRUDA [Suspect]
     Active Substance: PEMBROLIZUMAB
     Indication: METASTASES TO NECK
     Dosage: UNK
  2. DABRAFENIB [Suspect]
     Active Substance: DABRAFENIB
     Indication: THYROID CANCER RECURRENT
  3. DABRAFENIB [Suspect]
     Active Substance: DABRAFENIB
     Indication: METASTASES TO NECK
  4. TRAMETINIB [Suspect]
     Active Substance: TRAMETINIB
     Indication: THYROID CANCER RECURRENT
  5. TRAMETINIB [Suspect]
     Active Substance: TRAMETINIB
     Indication: METASTASES TO NECK

REACTIONS (1)
  - Drug ineffective [Unknown]
